FAERS Safety Report 18986518 (Version 1)
Quarter: 2021Q1

REPORT INFORMATION
  Report Type: Spontaneous
  Country: US (occurrence: US)
  Receive Date: 20210309
  Receipt Date: 20210309
  Transmission Date: 20210420
  Serious: Yes (Hospitalization)
  Sender: FDA-Public Use
  Company Number: None

PATIENT
  Age: 81 Year
  Sex: Female
  Weight: 42.9 kg

DRUGS (3)
  1. LEUCOVIRIN CALCIUM [Concomitant]
     Indication: PANCREATIC CARCINOMA METASTATIC
     Dates: end: 20210203
  2. 5?FLUOROURACIL [Suspect]
     Active Substance: FLUOROURACIL
     Indication: PANCREATIC CARCINOMA METASTATIC
     Dates: end: 20210203
  3. IRINOTECAN LIPOSOME (MM?398, ONIVYDE) [Suspect]
     Active Substance: IRINOTECAN HYDROCHLORIDE
     Indication: PANCREATIC CARCINOMA METASTATIC
     Dates: end: 20210203

REACTIONS (8)
  - Weight decreased [None]
  - Malignant neoplasm progression [None]
  - Diarrhoea [None]
  - Adult failure to thrive [None]
  - Deep vein thrombosis [None]
  - Dehydration [None]
  - Asthenia [None]
  - Stomatitis [None]

NARRATIVE: CASE EVENT DATE: 20210301
